FAERS Safety Report 4505942-4 (Version None)
Quarter: 2004Q4

REPORT INFORMATION
  Report Type: 
  Country: None (occurrence: None)
  Receive Date: 20041119
  Receipt Date: 20041112
  Transmission Date: 20050328
  Serious: Yes (Other)
  Sender: FDA-Public Use
  Company Number: PHNU2004DE03840

PATIENT
  Age: 58 Year
  Sex: Female

DRUGS (1)
  1. ZOMETA [Suspect]
     Indication: CARCINOMA
     Dates: start: 20041112, end: 20041112

REACTIONS (4)
  - ANGINA PECTORIS [None]
  - ELECTROCARDIOGRAM ABNORMAL [None]
  - SYNCOPE [None]
  - TROPONIN I INCREASED [None]
